FAERS Safety Report 8503523-9 (Version None)
Quarter: 2012Q3

REPORT INFORMATION
  Report Type: 
  Country: None (occurrence: None)
  Receive Date: 20120702
  Receipt Date: 20120625
  Transmission Date: 20120928
  Serious: Yes (Other)
  Sender: FDA-Public Use
  Company Number: CIP-2012-00226

PATIENT
  Sex: 0

DRUGS (3)
  1. CARBOPLATIN [Suspect]
     Indication: NON-SMALL CELL LUNG CANCER STAGE II
     Dosage: SEE IMAGE
     Route: 042
  2. PACLITAXEL [Suspect]
     Indication: NON-SMALL CELL LUNG CANCER STAGE II
     Dosage: 40 MG/M2 (DAYS 1, 8, 15, AND 22),INTRAVENOUS, 200 MG/M2 (EVERY 3 WEEKS),INTRAVENOUS
     Route: 042
  3. THORATIC RADIOTHERAPY (OTHER DIAGNOSTIC RADIOPHARMACEUTICALS) [Suspect]
     Indication: NON-SMALL CELL LUNG CANCER STAGE II
     Dosage: 66 GY IN 44 FRACTIONS OVER 4.4 WEEKS (TWICE A DAY; 5 DAYS A WEEK)

REACTIONS (1)
  - OESOPHAGITIS [None]
